FAERS Safety Report 4292792-X (Version None)
Quarter: 2004Q1

REPORT INFORMATION
  Report Type: 
  Country: None (occurrence: None)
  Receive Date: 20040210
  Receipt Date: 20040126
  Transmission Date: 20041129
  Serious: Yes (Hospitalization)
  Sender: FDA-Public Use
  Company Number: 190959

PATIENT
  Age: 42 Year
  Sex: Male
  Weight: 77 kg

DRUGS (4)
  1. AVONEX [Suspect]
     Indication: MULTIPLE SCLEROSIS
     Dosage: 30 MCG QW IM
     Route: 030
     Dates: start: 20010101, end: 20040116
  2. PLACEBO [Concomitant]
  3. IBU-TAB [Concomitant]
  4. ZOPICLON [Concomitant]

REACTIONS (6)
  - AGGRESSION [None]
  - IMPULSIVE BEHAVIOUR [None]
  - INFLUENZA LIKE ILLNESS [None]
  - OVERDOSE [None]
  - PANIC ATTACK [None]
  - SUICIDE ATTEMPT [None]
